FAERS Safety Report 6012297-5 (Version None)
Quarter: 2008Q4

REPORT INFORMATION
  Report Type: 
  Country: None (occurrence: None)
  Receive Date: 20081218
  Receipt Date: 20081105
  Transmission Date: 20090506
  Serious: No
  Sender: FDA-Public Use
  Company Number: US-ASTRAZENECA-2008UW24700

PATIENT
  Sex: Female

DRUGS (9)
  1. SYMBICORT [Suspect]
     Indication: ASTHMA
     Dosage: 160/4.5 MCG
     Route: 055
     Dates: start: 20081103
  2. SYMBICORT [Suspect]
     Indication: LUNG DISORDER
     Dosage: 160/4.5 MCG
     Route: 055
     Dates: start: 20081103
  3. LUNESTA [Concomitant]
     Indication: SLEEP DISORDER
  4. ATIVAN [Concomitant]
  5. LIPITOR [Concomitant]
  6. ISOBORIC [Concomitant]
  7. REMERON [Concomitant]
  8. VICODIN [Concomitant]
  9. FLEXERIL [Concomitant]

REACTIONS (2)
  - INSOMNIA [None]
  - TREMOR [None]
